FAERS Safety Report 10598449 (Version 1)
Quarter: 2014Q4

REPORT INFORMATION
  Report Type: Spontaneous
  Country: NL (occurrence: NL)
  Receive Date: 20141121
  Receipt Date: 20141121
  Transmission Date: 20150529
  Serious: Yes (Other)
  Sender: FDA-Public Use
  Company Number: NL-WATSON-2014-24747

PATIENT
  Age: 33 Year
  Sex: Female

DRUGS (2)
  1. TRIGYNON [Concomitant]
     Indication: PRODUCT USED FOR UNKNOWN INDICATION
     Dosage: 1 DF, DAILY;, EXTRA INFO: ORAL ANTICONCEPTIV; TRIGYNON DRAGEE
     Route: 048
     Dates: start: 20060123
  2. METRONIDAZOLE. [Suspect]
     Active Substance: METRONIDAZOLE
     Indication: FLATULENCE
     Dosage: 500 MG, BID
     Route: 048
     Dates: start: 20141024

REACTIONS (1)
  - Intestinal haemorrhage [Recovered/Resolved]

NARRATIVE: CASE EVENT DATE: 20141026
